FAERS Safety Report 5112571-0 (Version None)
Quarter: 2006Q3

REPORT INFORMATION
  Report Type: 
  Country: None (occurrence: None)
  Receive Date: 20060802
  Receipt Date: 20060516
  Transmission Date: 20061208
  Serious: No
  Sender: FDA-Public Use
  Company Number: 200614748US

PATIENT
  Age: 27 Year
  Sex: Male

DRUGS (22)
  1. KETEK [Suspect]
     Indication: ACUTE SINUSITIS
     Dates: start: 20060417, end: 20060421
  2. LORATADINE (CLARITIN) [Concomitant]
  3. PSEUDOEPHEDRINE HCL [Concomitant]
  4. PARACETAMOL [Concomitant]
  5. DEXTROMETHORPHAN HYDROBROMIDE [Concomitant]
  6. PSEUDOEPHEDRINE HYDROCHLORIDE (TYLENOL COLD AND FLU NON-DROWSY) [Concomitant]
  7. PARACETAMOL [Concomitant]
  8. CHLORPHEAMINE MALEATE [Concomitant]
  9. AZATADINE MALEATE [Concomitant]
  10. PSEUDOEPHEDRINE SULFATE (CONGESTAN) [Concomitant]
  11. ACETYLSALICYLIC ACID SRT [Concomitant]
  12. CAFFEINE [Concomitant]
  13. SALICYLAMIDE [Concomitant]
  14. PARACETAMOL (PAIN-AID) [Concomitant]
  15. ASCORBIC ACID [Concomitant]
  16. PHENYLEPHRINE HYDROCHLORIDE [Concomitant]
  17. PHENYLPROPANOLAMINE (HISTENOL FORTE) [Concomitant]
  18. NAPROXEN SODIUM (ALEVE COLD + SINUS) [Concomitant]
  19. IBUPROFEN COLD AND SINUS [Concomitant]
  20. GUAIFENESIN [Concomitant]
  21. PHENYLPROPANOLAMINE HYDROCHLORIDE (TUSSIN CF) [Concomitant]
  22. ASPIRIN [Concomitant]

REACTIONS (1)
  - DRUG SCREEN FALSE POSITIVE [None]
